FAERS Safety Report 9350765 (Version 1)
Quarter: 2013Q2

REPORT INFORMATION
  Report Type: Spontaneous
  Country: US (occurrence: US)
  Receive Date: 20130617
  Receipt Date: 20130617
  Transmission Date: 20140414
  Serious: Yes (Other)
  Sender: FDA-Public Use
  Company Number: US-PFIZER INC-2013180139

PATIENT
  Age: 34 Year
  Sex: Female
  Weight: 68.03 kg

DRUGS (16)
  1. EFFEXOR XR [Suspect]
     Indication: DEPRESSION
     Dosage: UNK
     Dates: start: 1998
  2. EFFEXOR XR [Suspect]
     Indication: OBSESSIVE-COMPULSIVE DISORDER
  3. EFFEXOR XR [Suspect]
     Indication: BIPOLAR DISORDER
  4. EFFEXOR XR [Suspect]
     Indication: ANXIETY
  5. EFFEXOR [Suspect]
     Indication: DEPRESSION
     Dosage: UNK
     Dates: start: 1998
  6. EFFEXOR [Suspect]
     Indication: OBSESSIVE-COMPULSIVE DISORDER
  7. EFFEXOR [Suspect]
     Indication: BIPOLAR DISORDER
  8. EFFEXOR [Suspect]
     Indication: ANXIETY
  9. PAXIL [Suspect]
     Indication: DEPRESSION
     Dosage: UNK
     Dates: start: 1998
  10. PAXIL [Suspect]
     Indication: OBSESSIVE-COMPULSIVE DISORDER
  11. PAXIL [Suspect]
     Indication: BIPOLAR DISORDER
  12. PAXIL [Suspect]
     Indication: ANXIETY
  13. PROZAC [Suspect]
     Indication: DEPRESSION
     Dosage: UNK
     Dates: start: 1998
  14. PROZAC [Suspect]
     Indication: OBSESSIVE-COMPULSIVE DISORDER
  15. PROZAC [Suspect]
     Indication: BIPOLAR DISORDER
  16. PROZAC [Suspect]
     Indication: ANXIETY

REACTIONS (2)
  - Mania [Unknown]
  - Vertigo [Unknown]
